FAERS Safety Report 7391108-X (Version None)
Quarter: 2011Q2

REPORT INFORMATION
  Report Type: 
  Country: None (occurrence: None)
  Receive Date: 20110404
  Receipt Date: 20110323
  Transmission Date: 20111010
  Serious: Yes (Disabling)
  Sender: FDA-Public Use
  Company Number: GB-ELI_LILLY_AND_COMPANY-GB201103006124

PATIENT
  Age: 53 Year
  Sex: Female
  Weight: 82 kg

DRUGS (9)
  1. PREGABALIN [Concomitant]
     Dosage: UNK
     Dates: start: 20101213
  2. LANSOPRAZOLE [Concomitant]
     Dosage: UNK
     Dates: start: 20101213
  3. MOMETASONE FUROATE [Concomitant]
     Dosage: UNK
     Dates: start: 20110307
  4. RAMIPRIL [Concomitant]
     Dosage: UNK
     Dates: start: 20101213
  5. E45 [Concomitant]
     Dosage: UNK
     Dates: start: 20101213
  6. THIAMINE [Concomitant]
     Dosage: UNK
     Dates: start: 20101213
  7. DULOXETINE HYDROCHLORIDE [Suspect]
     Dosage: UNK
     Dates: start: 20110315
  8. BETAMETHASONE VALERATE [Concomitant]
     Dosage: UNK
     Dates: start: 20110225
  9. FLUDROXYCORTIDE [Concomitant]
     Dosage: UNK
     Dates: start: 20110307

REACTIONS (1)
  - ERYTHEMA [None]
